FAERS Safety Report 21211597 (Version 1)
Quarter: 2022Q3

REPORT INFORMATION
  Report Type: Other
  Country: MX (occurrence: None)
  Receive Date: 20220815
  Receipt Date: 20220815
  Transmission Date: 20221027
  Serious: Yes (Other)
  Sender: FDA-Public Use
  Company Number: MX-ROCHE-2913096

PATIENT
  Age: 43 Year
  Sex: Female

DRUGS (1)
  1. OCREVUS [Suspect]
     Active Substance: OCRELIZUMAB
     Indication: Multiple sclerosis
     Dosage: 300 MILLILITERS WERE APPLIED AND NEXT SATURDAY THE REMAINING 300 MILLILITERS WILL BE APPLIED, AS THI
     Route: 042
     Dates: start: 20181123

REACTIONS (6)
  - Drug use disorder [Recovered/Resolved]
  - Off label use [Unknown]
  - Device occlusion [Recovered/Resolved]
  - Device delivery system issue [Recovered/Resolved]
  - Venous occlusion [Recovered/Resolved]
  - Burning sensation [Recovered/Resolved]

NARRATIVE: CASE EVENT DATE: 20220801
